FAERS Safety Report 24186294 (Version 3)
Quarter: 2024Q4

REPORT INFORMATION
  Report Type: Spontaneous
  Country: US (occurrence: US)
  Receive Date: 20240808
  Receipt Date: 20241211
  Transmission Date: 20250115
  Serious: Yes (Other)
  Sender: BRISTOL-MYERS SQUIBB COMPANY
  Company Number: US-BRISTOL-MYERS SQUIBB COMPANY-2024-122759

PATIENT
  Age: 81 Year
  Sex: Female

DRUGS (2)
  1. LENALIDOMIDE [Suspect]
     Active Substance: LENALIDOMIDE
     Indication: Osteoporosis
     Dosage: FREQUENCY: TAKE 1 CAPSULE BY MOUTH EVERY DAY FOR 21 DAYS, THEN 7 DAYS OFF, THEN REPEAT
     Route: 048
  2. LENALIDOMIDE [Suspect]
     Active Substance: LENALIDOMIDE
     Dosage: FREQUENCY: TAKE 1 CAPSULE BY MOUTH EVERY DAY FOR 21 DAYS, THEN 7 DAYS OFF, THEN REPEAT
     Route: 048

REACTIONS (3)
  - Irritable bowel syndrome [Recovered/Resolved]
  - Weight decreased [Unknown]
  - Clostridium difficile infection [Not Recovered/Not Resolved]
